FAERS Safety Report 24063585 (Version 1)
Quarter: 2024Q3

REPORT INFORMATION
  Report Type: Spontaneous
  Country: CN (occurrence: CN)
  Receive Date: 20240709
  Receipt Date: 20240709
  Transmission Date: 20241017
  Serious: Yes (Hospitalization, Other)
  Sender: ARGENX BVBA
  Company Number: CN-ARGENX-2024-ARGX-CN005090

PATIENT

DRUGS (6)
  1. VYVGART [Suspect]
     Active Substance: EFGARTIGIMOD ALFA-FCAB
     Indication: Guillain-Barre syndrome
     Dosage: 800 MG
     Route: 042
     Dates: start: 20240524
  2. VYVGART [Suspect]
     Active Substance: EFGARTIGIMOD ALFA-FCAB
     Indication: Pneumonia
  3. VYVGART [Suspect]
     Active Substance: EFGARTIGIMOD ALFA-FCAB
     Indication: Chronic obstructive pulmonary disease
  4. VYVGART [Suspect]
     Active Substance: EFGARTIGIMOD ALFA-FCAB
     Indication: Lower respiratory tract infection
  5. VYVGART [Suspect]
     Active Substance: EFGARTIGIMOD ALFA-FCAB
     Indication: Respiratory failure
  6. DEXAMETHASONE [Concomitant]
     Active Substance: DEXAMETHASONE
     Indication: Guillain-Barre syndrome
     Dosage: UNK, DAILY, 15 MG IVGTT
     Route: 042
     Dates: start: 20240525, end: 20240529

REACTIONS (3)
  - Rhabdomyolysis [Unknown]
  - Gastrointestinal haemorrhage [Unknown]
  - Off label use [Unknown]

NARRATIVE: CASE EVENT DATE: 20240527
